FAERS Safety Report 22828826 (Version 8)
Quarter: 2024Q3

REPORT INFORMATION
  Report Type: Spontaneous
  Country: US (occurrence: US)
  Receive Date: 20230816
  Receipt Date: 20240827
  Transmission Date: 20241016
  Serious: Yes (Hospitalization, Other)
  Sender: JOHNSON AND JOHNSON
  Company Number: US-UCBSA-2023040148

PATIENT
  Age: 44 Year
  Sex: Female
  Weight: 70.8 kg

DRUGS (10)
  1. CETIRIZINE HYDROCHLORIDE [Suspect]
     Active Substance: CETIRIZINE HYDROCHLORIDE
     Indication: Product used for unknown indication
     Dosage: 10 MG BY MOUTH 1 (ONE) TIME EACH DAY
     Route: 048
  2. RYSTIGGO [Suspect]
     Active Substance: ROZANOLIXIZUMAB-NOLI
     Indication: Myasthenia gravis
     Dosage: 560MG (4ML), ONCE A WEEK FOR 6 WEEKS (140 MILLIGRAM PER MILLILITER DOSE PER INTAKE)
     Route: 058
     Dates: start: 20230727
  3. RYSTIGGO [Suspect]
     Active Substance: ROZANOLIXIZUMAB-NOLI
     Dosage: 560MG (4ML), ONCE A WEEK FOR 6 WEEKS
     Route: 058
     Dates: start: 20230929
  4. RYSTIGGO [Suspect]
     Active Substance: ROZANOLIXIZUMAB-NOLI
     Dosage: 560 MILLIGRAM, WEEKLY (QW) FOR 6 WEEKS (3RD CYCLES)
     Route: 058
     Dates: start: 20231201
  5. AMLODIPINE + ATORVASTATIN [Concomitant]
     Indication: Product used for unknown indication
     Dosage: 5 TABLETS BY MOUTH 1 (ONE) TIME EACH DAY.
     Route: 048
  6. LOSARTAN [Concomitant]
     Active Substance: LOSARTAN\LOSARTAN POTASSIUM
     Indication: Product used for unknown indication
     Dosage: 25 MILLIGRAM, ONCE DAILY (QD)
     Route: 048
  7. METHYLPHENIDATE [Concomitant]
     Active Substance: METHYLPHENIDATE
     Indication: Attention deficit hyperactivity disorder
     Dosage: 5 MILLIGRAM, 3X/DAY (TID)
     Route: 048
  8. EPINEPHRINE [Concomitant]
     Active Substance: EPINEPHRINE
     Indication: Product used for unknown indication
     Dosage: 0.3 MILLIGRAM AS NEEDED
     Route: 030
  9. BANOPHEN [Concomitant]
     Active Substance: DIPHENHYDRAMINE HYDROCHLORIDE
     Indication: Product used for unknown indication
     Dosage: 25 MILLIGRAM
     Route: 048
  10. PREDNISONE [Concomitant]
     Active Substance: PREDNISONE
     Indication: Product used for unknown indication
     Dosage: 10 MILLIGRAM, ONCE DAILY (QD)
     Route: 048

REACTIONS (23)
  - Tension headache [Recovered/Resolved]
  - Musculoskeletal stiffness [Recovered/Resolved]
  - Chills [Recovered/Resolved]
  - Pyrexia [Recovered/Resolved]
  - Malaise [Recovered/Resolved]
  - Feeling abnormal [Recovered/Resolved]
  - Myasthenia gravis [Not Recovered/Not Resolved]
  - Sinus tachycardia [Recovering/Resolving]
  - Diarrhoea [Recovering/Resolving]
  - Poor quality sleep [Recovering/Resolving]
  - Nervousness [Recovering/Resolving]
  - Anxiety [Recovering/Resolving]
  - White blood cell count increased [Recovering/Resolving]
  - Hyperhidrosis [Recovering/Resolving]
  - Dry skin [Recovering/Resolving]
  - SARS-CoV-2 test negative [Unknown]
  - Dysphagia [Recovered/Resolved]
  - Musculoskeletal discomfort [Not Recovered/Not Resolved]
  - Fatigue [Not Recovered/Not Resolved]
  - Eyelid ptosis [Not Recovered/Not Resolved]
  - Dysarthria [Recovered/Resolved]
  - Diplopia [Not Recovered/Not Resolved]
  - Inappropriate schedule of product administration [Unknown]

NARRATIVE: CASE EVENT DATE: 20230804
